FAERS Safety Report 15934799 (Version 9)
Quarter: 2020Q2

REPORT INFORMATION
  Report Type: Report from Study
  Country: US (occurrence: US)
  Receive Date: 20190207
  Receipt Date: 20200421
  Transmission Date: 20200713
  Serious: Yes (Hospitalization, Other)
  Sender: FDA-Public Use
  Company Number: US-ACTELION-A-US2016-129919

PATIENT
  Sex: Female
  Weight: 80.73 kg

DRUGS (9)
  1. VELETRI [Suspect]
     Active Substance: EPOPROSTENOL
     Indication: PULMONARY ARTERIAL HYPERTENSION
     Dosage: 33 NG/KG, PER MIN
     Route: 042
  2. VELETRI [Suspect]
     Active Substance: EPOPROSTENOL
     Dosage: 14 NG/KG, PER MIN
     Route: 042
  3. ADEMPAS [Concomitant]
     Active Substance: RIOCIGUAT
     Dosage: 2.5 UNK
  4. LETAIRIS [Concomitant]
     Active Substance: AMBRISENTAN
     Dosage: 10 MG
  5. VELETRI [Suspect]
     Active Substance: EPOPROSTENOL
     Dosage: 35 NG/KG, PER MIN
     Route: 042
  6. VELETRI [Suspect]
     Active Substance: EPOPROSTENOL
     Dosage: 29 NG/KG, PER MIN
     Route: 042
     Dates: start: 20151130
  7. TORSEMIDE. [Concomitant]
     Active Substance: TORSEMIDE
     Dosage: 60 MG, BID
  8. METHIMAZOLE. [Concomitant]
     Active Substance: METHIMAZOLE
     Dosage: 20 MG
  9. METHIMAZOLE. [Concomitant]
     Active Substance: METHIMAZOLE
     Dosage: 10 MG

REACTIONS (27)
  - Device related infection [Unknown]
  - Rash [Unknown]
  - Diarrhoea [Unknown]
  - Dyspnoea [Unknown]
  - Upper respiratory tract infection [Unknown]
  - Acute respiratory failure [Unknown]
  - Pulmonary arterial pressure increased [Unknown]
  - Cardiac failure congestive [Unknown]
  - Normocytic anaemia [Unknown]
  - Productive cough [Unknown]
  - Asthma [Unknown]
  - Fluid overload [Recovering/Resolving]
  - Oedema [Unknown]
  - Supraventricular tachycardia [Unknown]
  - Heart and lung transplant [Unknown]
  - Bronchitis [Unknown]
  - Flushing [Unknown]
  - Weight increased [Recovering/Resolving]
  - Hyperthyroidism [Unknown]
  - Nausea [Recovered/Resolved]
  - Condition aggravated [Unknown]
  - Sleep apnoea syndrome [Unknown]
  - Pneumonia [Unknown]
  - Pulmonary arterial hypertension [Unknown]
  - Pain in jaw [Unknown]
  - Dyspnoea exertional [Unknown]
  - Nasal congestion [Unknown]
